FAERS Safety Report 6602172 (Version 3)
Quarter: 2018Q4

REPORT INFORMATION
  Report Type: Spontaneous
  Country: IT (occurrence: IT)
  Receive Date: 20080331
  Receipt Date: 20181204
  Transmission Date: 20190205
  Serious: Yes (Hospitalization)
  Sender: FDA-Public Use
  Company Number: IT-SANOFI-SYNTHELABO-A06200800122

PATIENT
  Age: 64 Year
  Sex: Male

DRUGS (6)
  1. ELOXATIN [Suspect]
     Active Substance: OXALIPLATIN
     Dosage: 155 MG, QCY
     Route: 041
     Dates: start: 20071206, end: 20071206
  2. CALCIUM LEVOFOLINATE [Concomitant]
     Active Substance: LEVOLEUCOVORIN CALCIUM
     Indication: COLON CANCER METASTATIC
     Dosage: 365 MG, UNK
     Route: 042
     Dates: start: 20070606, end: 20071206
  3. ELOXATIN [Suspect]
     Active Substance: OXALIPLATIN
     Dosage: 155 MG, QCY
     Route: 041
     Dates: start: 20071206, end: 20071206
  4. FLUOROURACIL TEVA [Concomitant]
     Active Substance: FLUOROURACIL
     Indication: COLON CANCER METASTATIC
     Dosage: 735 MG, UNK
     Route: 042
     Dates: start: 20070606, end: 20071206
  5. ELOXATIN [Suspect]
     Active Substance: OXALIPLATIN
     Indication: COLON CANCER METASTATIC
     Dosage: 155 MG, QCY
     Route: 041
     Dates: start: 20070606, end: 20070606
  6. ELOXATIN [Suspect]
     Active Substance: OXALIPLATIN
     Dosage: 155 MG, QCY
     Route: 041
     Dates: start: 20070606, end: 20070606

REACTIONS (2)
  - Lung disorder [Recovered/Resolved]
  - Congestive cardiomyopathy [Recovered/Resolved]

NARRATIVE: CASE EVENT DATE: 20080118
